FAERS Safety Report 6434993-8 (Version None)
Quarter: 2009Q4

REPORT INFORMATION
  Report Type: 
  Country: None (occurrence: None)
  Receive Date: 20091110
  Receipt Date: 20091028
  Transmission Date: 20100525
  Serious: Yes (Other)
  Sender: FDA-Public Use
  Company Number: PHEH2009US14414

PATIENT
  Sex: Male

DRUGS (1)
  1. GENTEAL (NVO) [Suspect]
     Dosage: UNK

REACTIONS (5)
  - BLINDNESS TRANSIENT [None]
  - DRY EYE [None]
  - EYE DISCHARGE [None]
  - EYELID DISORDER [None]
  - VISUAL IMPAIRMENT [None]
